FAERS Safety Report 13563648 (Version 1)
Quarter: 2017Q2

REPORT INFORMATION
  Report Type: Spontaneous
  Country: US (occurrence: US)
  Receive Date: 20170519
  Receipt Date: 20170519
  Transmission Date: 20170830
  Serious: Yes (Hospitalization)
  Sender: FDA-Public Use
  Company Number: US-PERRIGO-17US023411

PATIENT
  Sex: Male
  Weight: 82.54 kg

DRUGS (4)
  1. NIGHTTIME SLEEP AID (DOXYLAMINE SUCCINATE) [Suspect]
     Active Substance: DOXYLAMINE SUCCINATE
     Indication: INSOMNIA
     Dosage: 25 MG, PRN
     Route: 048
     Dates: start: 2015, end: 2015
  2. NIGHTTIME SLEEP AID (DOXYLAMINE SUCCINATE) [Suspect]
     Active Substance: DOXYLAMINE SUCCINATE
     Dosage: 25 MG, PRN
     Route: 048
     Dates: start: 201610, end: 201611
  3. PRIVIGEN [Concomitant]
     Active Substance: HUMAN IMMUNOGLOBULIN G
     Indication: CHRONIC INFLAMMATORY DEMYELINATING POLYRADICULONEUROPATHY
     Dosage: UNKNOWN, EVERY 6 WEEKS
     Route: 065
     Dates: start: 2014
  4. SIMVASTATIN. [Concomitant]
     Active Substance: SIMVASTATIN
     Indication: BLOOD CHOLESTEROL INCREASED
     Dosage: 40MG, UNK
     Route: 065

REACTIONS (2)
  - Confusional state [Recovered/Resolved]
  - Underdose [Recovered/Resolved]

NARRATIVE: CASE EVENT DATE: 2015
